FAERS Safety Report 9719108 (Version 3)
Quarter: 2013Q4

REPORT INFORMATION
  Report Type: Report from Study
  Country: DE (occurrence: DE)
  Receive Date: 20131127
  Receipt Date: 20131210
  Transmission Date: 20140711
  Serious: Yes (Death, Other)
  Sender: FDA-Public Use
  Company Number: DE-GILEAD-2012-0052883

PATIENT
  Age: 13 Year
  Sex: Male
  Weight: 32.9 kg

DRUGS (4)
  1. AMBRISENTAN [Suspect]
     Indication: PULMONARY ARTERIAL HYPERTENSION
     Dosage: 1 DF, QD
     Route: 048
     Dates: start: 20111028
  2. MORPHIN                            /00036302/ [Concomitant]
     Indication: PAIN
     Dates: start: 20120321, end: 20120323
  3. BEROTEC [Concomitant]
     Indication: OBSTRUCTIVE AIRWAYS DISORDER
     Route: 055
     Dates: start: 20120321, end: 20120321
  4. BEROTEC [Concomitant]
     Route: 055
     Dates: start: 20120321, end: 201203

REACTIONS (1)
  - Pneumonia [Fatal]
